FAERS Safety Report 14150258 (Version 1)
Quarter: 2017Q4

REPORT INFORMATION
  Report Type: Spontaneous
  Country: US (occurrence: US)
  Receive Date: 20171101
  Receipt Date: 20171101
  Transmission Date: 20180321
  Serious: Yes (Death, Other)
  Sender: FDA-Public Use
  Company Number: US-PFIZER INC-2017469295

PATIENT
  Sex: Male

DRUGS (18)
  1. AVINZA [Suspect]
     Active Substance: MORPHINE SULFATE
     Dosage: UNK
     Dates: start: 201508, end: 201704
  2. FENTANYL CITRATE. [Suspect]
     Active Substance: FENTANYL CITRATE
     Indication: PAIN
     Dosage: UNK
     Dates: start: 201102, end: 201505
  3. OXYCONTIN [Suspect]
     Active Substance: OXYCODONE HYDROCHLORIDE
     Indication: PAIN
     Dosage: UNK
     Dates: start: 201102, end: 201505
  4. OXYIR [Suspect]
     Active Substance: OXYCODONE HYDROCHLORIDE
     Dosage: UNK
     Dates: start: 201508, end: 201704
  5. MS IR [Suspect]
     Active Substance: MORPHINE SULFATE
     Indication: PAIN
     Dosage: UNK
     Dates: start: 201102, end: 201505
  6. MS IR [Suspect]
     Active Substance: MORPHINE SULFATE
     Dosage: UNK
     Dates: start: 201508, end: 201704
  7. PERCOCET [Suspect]
     Active Substance: ACETAMINOPHEN\OXYCODONE HYDROCHLORIDE
     Indication: PAIN
     Dosage: UNK
     Dates: start: 201102, end: 201505
  8. NEURONTIN [Suspect]
     Active Substance: GABAPENTIN
     Dosage: UNK
     Dates: start: 201508, end: 201704
  9. MS CONTIN [Suspect]
     Active Substance: MORPHINE SULFATE
     Dosage: UNK
     Dates: start: 201508, end: 201704
  10. MORPHINE SULFATE. [Suspect]
     Active Substance: MORPHINE SULFATE
     Dosage: 30 MG, UNK
     Dates: start: 201703, end: 201704
  11. AVINZA [Suspect]
     Active Substance: MORPHINE SULFATE
     Indication: PAIN
     Dosage: UNK
     Dates: start: 201102, end: 201505
  12. NEURONTIN [Suspect]
     Active Substance: GABAPENTIN
     Indication: PAIN
     Dosage: UNK
     Dates: start: 201102, end: 201505
  13. OXYCODONE HYDROCHLORIDE. [Suspect]
     Active Substance: OXYCODONE HYDROCHLORIDE
     Indication: PAIN
     Dosage: UNK
     Dates: start: 201102, end: 201505
  14. OXYCODONE HYDROCHLORIDE. [Suspect]
     Active Substance: OXYCODONE HYDROCHLORIDE
     Dosage: UNK
     Dates: start: 201508, end: 201704
  15. MS CONTIN [Suspect]
     Active Substance: MORPHINE SULFATE
     Indication: PAIN
     Dosage: UNK
     Dates: start: 201102, end: 201505
  16. MORPHINE SULFATE. [Suspect]
     Active Substance: MORPHINE SULFATE
     Indication: PAIN
     Dosage: 60 MG, UNK
     Dates: start: 201508, end: 201703
  17. OXYCONTIN [Suspect]
     Active Substance: OXYCODONE HYDROCHLORIDE
     Dosage: UNK
     Dates: start: 201508, end: 201704
  18. OXYIR [Suspect]
     Active Substance: OXYCODONE HYDROCHLORIDE
     Indication: PAIN
     Dosage: UNK
     Dates: start: 201102, end: 201505

REACTIONS (8)
  - Dyspnoea [Unknown]
  - Anxiety [Unknown]
  - Asthma [Unknown]
  - Depression [Unknown]
  - Chronic obstructive pulmonary disease [Unknown]
  - Drug prescribing error [Unknown]
  - Drug dependence [Unknown]
  - Withdrawal syndrome [Fatal]
